FAERS Safety Report 15661680 (Version 2)
Quarter: 2020Q3

REPORT INFORMATION
  Report Type: Spontaneous
  Country: US (occurrence: US)
  Receive Date: 20181127
  Receipt Date: 20200818
  Transmission Date: 20201102
  Serious: No
  Sender: FDA-Public Use
  Company Number: US-GILEAD-2018-0376031

PATIENT
  Sex: Male
  Weight: 57 kg

DRUGS (18)
  1. VIREAD [Suspect]
     Active Substance: TENOFOVIR DISOPROXIL FUMARATE
     Indication: HIV INFECTION
     Dosage: UNK
     Route: 048
     Dates: start: 200803
  2. STRIBILD [Suspect]
     Active Substance: COBICISTAT\ELVITEGRAVIR\EMTRICITABINE\TENOFOVIR DISOPROXIL FUMARATE
     Indication: HIV INFECTION
     Dosage: UNK
     Route: 048
     Dates: start: 201404, end: 201509
  3. ATRIPLA [Suspect]
     Active Substance: EFAVIRENZ\EMTRICITABINE\TENOFOVIR DISOPROXIL FUMARATE
     Indication: HIV INFECTION
     Dosage: UNK
     Route: 048
     Dates: start: 200702, end: 201403
  4. KETOCONAZOLE. [Concomitant]
     Active Substance: KETOCONAZOLE
  5. ANDROGEL [Concomitant]
     Active Substance: TESTOSTERONE
  6. ZOLPIDEM TARTRATE. [Concomitant]
     Active Substance: ZOLPIDEM TARTRATE
  7. OXANDROLONE. [Concomitant]
     Active Substance: OXANDROLONE
  8. BIKTARVY [Concomitant]
     Active Substance: BICTEGRAVIR SODIUM\EMTRICITABINE\TENOFOVIR ALAFENAMIDE FUMARATE
  9. MEGESTROL [Concomitant]
     Active Substance: MEGESTROL
  10. TRIUMEQ [Concomitant]
     Active Substance: ABACAVIR SULFATE\DOLUTEGRAVIR SODIUM\LAMIVUDINE
  11. ANASTROZOLE. [Concomitant]
     Active Substance: ANASTROZOLE
  12. TESTOSTERONE. [Concomitant]
     Active Substance: TESTOSTERONE
  13. OMEPRAZOLE. [Concomitant]
     Active Substance: OMEPRAZOLE
  14. TEMAZEPAM. [Concomitant]
     Active Substance: TEMAZEPAM
  15. TRUVADA [Suspect]
     Active Substance: EMTRICITABINE\TENOFOVIR DISOPROXIL FUMARATE
     Indication: HIV INFECTION
     Dosage: UNK
     Route: 048
     Dates: start: 2004, end: 200803
  16. DIAZEPAM. [Concomitant]
     Active Substance: DIAZEPAM
  17. TRAMADOL. [Concomitant]
     Active Substance: TRAMADOL
  18. DRONABINOL. [Concomitant]
     Active Substance: DRONABINOL

REACTIONS (8)
  - Anhedonia [Unknown]
  - Night sweats [Unknown]
  - Sleep terror [Unknown]
  - Anxiety [Unknown]
  - Economic problem [Unknown]
  - Renal impairment [Not Recovered/Not Resolved]
  - Pain [Unknown]
  - Emotional distress [Unknown]

NARRATIVE: CASE EVENT DATE: 201509
